FAERS Safety Report 8589587 (Version 7)
Quarter: 2017Q1

REPORT INFORMATION
  Report Type: Spontaneous
  Country: US (occurrence: US)
  Receive Date: 20120531
  Receipt Date: 20170227
  Transmission Date: 20170429
  Serious: Yes (Disabling, Other)
  Sender: FDA-Public Use
  Company Number: US-MERCK-1205USA05030

PATIENT
  Sex: Male
  Weight: 79.37 kg

DRUGS (2)
  1. PROPECIA [Suspect]
     Active Substance: FINASTERIDE
     Indication: ALOPECIA
     Dosage: 1 MG, UNK
     Route: 048
     Dates: start: 20020802, end: 20110119
  2. PROPECIA [Suspect]
     Active Substance: FINASTERIDE
     Dosage: 1 MG, UNK
     Route: 048
     Dates: start: 201106, end: 20111129

REACTIONS (29)
  - Erectile dysfunction [Not Recovered/Not Resolved]
  - Adverse event [Unknown]
  - Self esteem decreased [Unknown]
  - Gastrooesophageal reflux disease [Unknown]
  - Sexual dysfunction [Unknown]
  - Cognitive disorder [Not Recovered/Not Resolved]
  - Libido decreased [Not Recovered/Not Resolved]
  - Testicular disorder [Unknown]
  - Asthenia [Unknown]
  - Depression [Not Recovered/Not Resolved]
  - Hypertension [Unknown]
  - Pollakiuria [Unknown]
  - Haematuria [Unknown]
  - Abdominal pain lower [Unknown]
  - Testicular pain [Not Recovered/Not Resolved]
  - Anxiety [Not Recovered/Not Resolved]
  - Ejaculation failure [Not Recovered/Not Resolved]
  - Limb operation [Unknown]
  - Beta haemolytic streptococcal infection [Unknown]
  - Tendon operation [Unknown]
  - Papilloma viral infection [Unknown]
  - Scar excision [Unknown]
  - Ejaculation disorder [Not Recovered/Not Resolved]
  - Penile size reduced [Unknown]
  - Tendon injury [Unknown]
  - Testicular mass [Unknown]
  - Scar [Unknown]
  - Prostatitis [Not Recovered/Not Resolved]
  - Sexual dysfunction [Not Recovered/Not Resolved]

NARRATIVE: CASE EVENT DATE: 2002
